FAERS Safety Report 22141994 (Version 1)
Quarter: 2023Q1

REPORT INFORMATION
  Report Type: Spontaneous
  Country: JP (occurrence: JP)
  Receive Date: 20230327
  Receipt Date: 20230327
  Transmission Date: 20230418
  Serious: Yes (Other)
  Sender: FDA-Public Use
  Company Number: JP-JNJFOC-20230365018

PATIENT
  Age: 30 Year
  Sex: Male

DRUGS (1)
  1. TRABECTEDIN [Suspect]
     Active Substance: TRABECTEDIN
     Indication: Synovial sarcoma
     Dosage: 1ST CYCLE
     Route: 042

REACTIONS (2)
  - Diabetes mellitus [Unknown]
  - Gamma-glutamyltransferase increased [Not Recovered/Not Resolved]

NARRATIVE: CASE EVENT DATE: 20221101
